FAERS Safety Report 17026281 (Version 2)
Quarter: 2019Q4

REPORT INFORMATION
  Report Type: Spontaneous
  Country: FR (occurrence: FR)
  Receive Date: 20191113
  Receipt Date: 20191121
  Transmission Date: 20200122
  Serious: Yes (Other)
  Sender: FDA-Public Use
  Company Number: FR-MYLANLABS-2019M1108351

PATIENT
  Age: 47 Year
  Sex: Female

DRUGS (11)
  1. LARGACTIL                          /00011901/ [Suspect]
     Active Substance: CHLORPROMAZINE
     Indication: MIGRAINE
     Dosage: UNK
     Route: 048
     Dates: start: 20190628, end: 20190701
  2. CODEINE PHOSPHATE HYDRATE [Suspect]
     Active Substance: CODEINE PHOSPHATE
     Indication: MIGRAINE
     Dosage: UNK
     Route: 048
     Dates: start: 20190627, end: 20190627
  3. PRIMPERAN [Suspect]
     Active Substance: METOCLOPRAMIDE HYDROCHLORIDE
     Indication: VOMITING
     Dosage: UNK
     Route: 048
     Dates: start: 201906
  4. SUMATRIPTAN. [Suspect]
     Active Substance: SUMATRIPTAN
     Indication: MIGRAINE
     Dosage: UNK
     Route: 048
     Dates: start: 20190626, end: 20190627
  5. SERETIDE [Concomitant]
     Active Substance: FLUTICASONE PROPIONATE\SALMETEROL XINAFOATE
     Dosage: UNK
     Route: 055
  6. DONORMYL                           /00334102/ [Suspect]
     Active Substance: DOXYLAMINE SUCCINATE
     Indication: INSOMNIA
     Dosage: UNK
     Route: 048
     Dates: start: 20190701, end: 20190701
  7. LEVOTHYROX [Concomitant]
     Active Substance: LEVOTHYROXINE
     Dosage: UNK
  8. FUMAFER [Concomitant]
     Active Substance: FERROUS FUMARATE
     Dosage: UNK
     Route: 048
  9. ACIDE FOLIQUE [Concomitant]
     Active Substance: FOLIC ACID
     Dosage: UNK
     Route: 048
  10. PARACETAMOL [Suspect]
     Active Substance: ACETAMINOPHEN
     Indication: MIGRAINE
     Dosage: UNK
     Route: 048
     Dates: start: 20190627, end: 20190627
  11. KETOPROFEN. [Suspect]
     Active Substance: KETOPROFEN
     Indication: MIGRAINE
     Dosage: UNK
     Route: 048
     Dates: start: 201906

REACTIONS (2)
  - Maternal exposure during pregnancy [Recovered/Resolved]
  - Abortion spontaneous [Recovered/Resolved]

NARRATIVE: CASE EVENT DATE: 20190702
